FAERS Safety Report 9279243 (Version 1)
Quarter: 2013Q2

REPORT INFORMATION
  Report Type: Spontaneous
  Country: DE (occurrence: DE)
  Receive Date: 20130508
  Receipt Date: 20130508
  Transmission Date: 20140414
  Serious: Yes (Congenital Anomaly, Other)
  Sender: FDA-Public Use
  Company Number: DE-TEVA-401798GER

PATIENT
  Age: 0 Year
  Sex: Male
  Weight: .61 kg

DRUGS (6)
  1. IBUPROFEN [Suspect]
     Dosage: 300 MILLIGRAM DAILY; 300 (MG/D)/ PRECONCEPTIONAL 1200MG/D
     Route: 064
     Dates: start: 20120301, end: 20120925
  2. DAIVOBET [Concomitant]
     Dosage: SMALL-AREA
     Route: 064
     Dates: start: 20120201
  3. FOLIO FORTE [Concomitant]
     Dosage: .8 MILLIGRAM DAILY;
     Route: 064
     Dates: start: 20120201
  4. KADEFUNGIN 3 [Concomitant]
     Dosage: 20 MILLIGRAM DAILY;
     Route: 064
  5. MIFEGYNE [Concomitant]
     Route: 064
     Dates: start: 20120925, end: 20120925
  6. CYTOTEC [Concomitant]
     Route: 064
     Dates: start: 20120925, end: 20120925

REACTIONS (4)
  - Foetal growth restriction [Not Recovered/Not Resolved]
  - Ventricular septal defect [Not Recovered/Not Resolved]
  - Skeletal dysplasia [Not Recovered/Not Resolved]
  - Abortion induced [Unknown]
